FAERS Safety Report 4349406-X (Version None)
Quarter: 2004Q2

REPORT INFORMATION
  Report Type: 
  Country: None (occurrence: None)
  Receive Date: 20040428
  Receipt Date: 20040407
  Transmission Date: 20050107
  Serious: Yes (Hospitalization)
  Sender: FDA-Public Use
  Company Number: DE-GLAXOSMITHKLINE-D0043563A

PATIENT
  Sex: Female
  Weight: 60 kg

DRUGS (1)
  1. LAMICTAL [Suspect]
     Indication: EPILEPSY
     Route: 048
     Dates: start: 20030301

REACTIONS (7)
  - JOINT EFFUSION [None]
  - JOINT SWELLING [None]
  - LUPUS-LIKE SYNDROME [None]
  - MONARTHRITIS [None]
  - PHARYNGOLARYNGEAL PAIN [None]
  - SYNOVITIS [None]
  - TONSILLITIS [None]
